FAERS Safety Report 12549792 (Version 2)
Quarter: 2016Q4

REPORT INFORMATION
  Report Type: Spontaneous
  Country: FR (occurrence: FR)
  Receive Date: 20160712
  Receipt Date: 20161104
  Transmission Date: 20170207
  Serious: Yes (Hospitalization, Other)
  Sender: FDA-Public Use
  Company Number: FR-BAXTER-2016BAX035404

PATIENT
  Age: 57 Year
  Sex: Female

DRUGS (21)
  1. THALIDOMIDE [Suspect]
     Active Substance: THALIDOMIDE
     Dosage: FOURTH COURSE
     Route: 048
     Dates: start: 20160201, end: 201602
  2. DEXAMETHASONE. [Suspect]
     Active Substance: DEXAMETHASONE
     Dosage: ON DAY8, DAY9, DAY15 AND DAY16, SECOND COURSE
     Route: 042
  3. DEXAMETHASONE. [Suspect]
     Active Substance: DEXAMETHASONE
     Dosage: ON DAY8, DAY9, DAY15 AND DAY16, FOURTH COURSE
     Route: 042
  4. DEXAMETHASONE. [Suspect]
     Active Substance: DEXAMETHASONE
     Dosage: ON DAY8, DAY9, DAY15 AND DAY16, THIRD COURSE
     Route: 042
  5. ENDOXAN 1000 MG, POUDRE POUR SOLUTION INJECTABLE [Suspect]
     Active Substance: CYCLOPHOSPHAMIDE
     Indication: PLASMA CELL MYELOMA
     Dosage: HIGH DOSES
     Route: 042
     Dates: start: 20160229, end: 20160229
  6. VELCADE [Suspect]
     Active Substance: BORTEZOMIB
     Indication: PLASMA CELL MYELOMA
     Dosage: DAY 1, 4, 8 AND 11 OF EACH CYCLE; FIRST CYCLE
     Route: 058
     Dates: start: 20151109
  7. VELCADE [Suspect]
     Active Substance: BORTEZOMIB
     Dosage: DAY 1, 4, 8 AND 11 OF EACH CYCLE; THIRD CYCLE
     Route: 058
     Dates: start: 20160104
  8. THALIDOMIDE [Suspect]
     Active Substance: THALIDOMIDE
     Indication: PLASMA CELL MYELOMA
     Dosage: FIRST COURSE
     Route: 048
     Dates: start: 20151109
  9. DEXAMETHASONE. [Suspect]
     Active Substance: DEXAMETHASONE
     Indication: PLASMA CELL MYELOMA
     Dosage: ON DAY1 AND DAY2, FIRST COURSE
     Route: 042
     Dates: start: 20151109
  10. ALKERAN [Suspect]
     Active Substance: MELPHALAN
     Indication: BONE MARROW CONDITIONING REGIMEN
     Route: 042
     Dates: start: 20160409, end: 20160409
  11. AUGMENTIN [Suspect]
     Active Substance: AMOXICILLIN\CLAVULANATE POTASSIUM
     Indication: PRODUCT USED FOR UNKNOWN INDICATION
     Route: 065
  12. VALSARTAN. [Concomitant]
     Active Substance: VALSARTAN
     Indication: PRODUCT USED FOR UNKNOWN INDICATION
     Dosage: LONG TERM
     Route: 065
  13. VELCADE [Suspect]
     Active Substance: BORTEZOMIB
     Dosage: DAY 1, 4, 8 AND 11 OF EACH CYCLE; SECOND CYCLE
     Route: 058
     Dates: start: 20151207
  14. THALIDOMIDE [Suspect]
     Active Substance: THALIDOMIDE
     Dosage: THIRD COURSE
     Route: 048
     Dates: start: 20160104
  15. DEXAMETHASONE. [Suspect]
     Active Substance: DEXAMETHASONE
     Dosage: ON DAY1 AND DAY2, FOURTH COURSE
     Route: 042
     Dates: start: 20160201
  16. UROMITEXAN 1 G/10 ML, SOLUTION INJECTABLE POUR PERFUSION EN FLACON [Suspect]
     Active Substance: MESNA
     Indication: PLASMA CELL MYELOMA
     Route: 042
     Dates: start: 20160229, end: 20160229
  17. VELCADE [Suspect]
     Active Substance: BORTEZOMIB
     Dosage: DAY 1, 4, 8 AND 11 OF EACH CYCLE; FOURTH CYCLE
     Route: 058
     Dates: start: 20160201
  18. THALIDOMIDE [Suspect]
     Active Substance: THALIDOMIDE
     Dosage: SECOND COURSE
     Route: 048
     Dates: start: 20151207
  19. DEXAMETHASONE. [Suspect]
     Active Substance: DEXAMETHASONE
     Dosage: ON DAY8, DAY9, DAY15 AND DAY16, FIRST COURSE
     Route: 042
  20. DEXAMETHASONE. [Suspect]
     Active Substance: DEXAMETHASONE
     Dosage: ON DAY1 AND DAY2, SECOND COURSE
     Route: 042
     Dates: start: 20151207
  21. DEXAMETHASONE. [Suspect]
     Active Substance: DEXAMETHASONE
     Dosage: ON DAY1 AND DAY2, THIRD COURSE
     Route: 042
     Dates: start: 20160104

REACTIONS (6)
  - Therapy non-responder [Unknown]
  - Cardiac failure acute [Not Recovered/Not Resolved]
  - Congestive cardiomyopathy [Not Recovered/Not Resolved]
  - Sputum purulent [Unknown]
  - Haemophilus infection [Unknown]
  - Candida infection [Unknown]

NARRATIVE: CASE EVENT DATE: 20160613
